FAERS Safety Report 15203721 (Version 1)
Quarter: 2018Q3

REPORT INFORMATION
  Report Type: Spontaneous
  Country: US (occurrence: US)
  Receive Date: 20180726
  Receipt Date: 20180726
  Transmission Date: 20181010
  Serious: Yes (Hospitalization)
  Sender: FDA-Public Use
  Company Number: US-MYLANLABS-2018M1055258

PATIENT
  Age: 4 Year
  Sex: Male
  Weight: 18.1 kg

DRUGS (8)
  1. SEVOFLURANE. [Suspect]
     Active Substance: SEVOFLURANE
     Indication: INDUCTION OF ANAESTHESIA
     Dosage: RECEIVED INHALATION OF INCREMENTAL CONCENTRATIONS OF SEVOFLURANE IN NITROUS OXIDE AND OXYGEN
     Route: 055
  2. DEXAMETHASONE. [Concomitant]
     Active Substance: DEXAMETHASONE
     Indication: PRODUCT USED FOR UNKNOWN INDICATION
     Route: 065
  3. FENTANYL. [Suspect]
     Active Substance: FENTANYL
     Indication: MAINTENANCE OF ANAESTHESIA
     Route: 055
  4. KETOROLAC [Concomitant]
     Active Substance: KETOROLAC\KETOROLAC TROMETHAMINE
     Indication: PRODUCT USED FOR UNKNOWN INDICATION
     Route: 065
  5. DIPHENHYDRAMINE. [Concomitant]
     Active Substance: DIPHENHYDRAMINE
     Indication: PRODUCT USED FOR UNKNOWN INDICATION
     Route: 065
  6. ONDANSETRON [Concomitant]
     Active Substance: ONDANSETRON
     Indication: PRODUCT USED FOR UNKNOWN INDICATION
     Route: 065
  7. NITROUS OXIDE W/OXYGEN [Suspect]
     Active Substance: NITROUS OXIDE\OXYGEN
     Indication: INDUCTION OF ANAESTHESIA
     Dosage: RECEIVED INHALATION OF INCREMENTAL CONCENTRATIONS OF SEVOFLURANE IN NITROUS OXIDE AND OXYGEN
     Route: 055
  8. SEVOFLURANE. [Suspect]
     Active Substance: SEVOFLURANE
     Dosage: 2?3% IN AIR/OXYGEN
     Route: 055

REACTIONS (5)
  - Electrocardiogram ST segment depression [Recovered/Resolved]
  - Myocardial ischaemia [Recovered/Resolved]
  - Electrocardiogram T wave biphasic [Recovered/Resolved]
  - Hypotension [Recovered/Resolved]
  - Tachycardia [Recovered/Resolved]
